FAERS Safety Report 14927051 (Version 1)
Quarter: 2018Q2

REPORT INFORMATION
  Report Type: Spontaneous
  Country: BR (occurrence: BR)
  Receive Date: 20180523
  Receipt Date: 20180523
  Transmission Date: 20180711
  Serious: Yes (Other)
  Sender: FDA-Public Use
  Company Number: BR-AMGEN-BRASP2018069446

PATIENT

DRUGS (1)
  1. NEULASTIM [Suspect]
     Active Substance: PEGFILGRASTIM
     Indication: PROPHYLAXIS
     Dosage: UNK (6 MG/0.6 ML)
     Route: 065

REACTIONS (2)
  - Therapy non-responder [Unknown]
  - Neutropenia [Unknown]
